FAERS Safety Report 10013688 (Version 2)
Quarter: 2014Q1

REPORT INFORMATION
  Report Type: Spontaneous
  Country: IE (occurrence: IE)
  Receive Date: 20140315
  Receipt Date: 20140315
  Transmission Date: 20141002
  Serious: Yes (Other)
  Sender: FDA-Public Use
  Company Number: US-ASTRAZENECA-2014SE14296

PATIENT
  Age: 6 Month
  Sex: Male

DRUGS (12)
  1. SYNAGIS [Suspect]
     Indication: HEART DISEASE CONGENITAL
     Route: 030
     Dates: start: 20131024, end: 20131024
  2. SYNAGIS [Suspect]
     Indication: HEART DISEASE CONGENITAL
     Route: 030
     Dates: start: 20140207, end: 20140207
  3. SYNAGIS [Suspect]
     Indication: HEART DISEASE CONGENITAL
     Route: 030
  4. SPIRONOLACTONE [Concomitant]
     Indication: CARDIOMYOPATHY
     Route: 048
     Dates: start: 201307
  5. FUROSEMIDE [Concomitant]
     Indication: CARDIOMYOPATHY
     Route: 048
     Dates: start: 201307
  6. GALFER [Concomitant]
     Indication: PRODUCT USED FOR UNKNOWN INDICATION
     Route: 048
  7. ZOTON [Concomitant]
     Indication: CARDIOMYOPATHY
     Route: 048
     Dates: start: 201307
  8. AMIODARONE [Concomitant]
     Indication: CARDIOMYOPATHY
     Route: 048
     Dates: start: 201307
  9. CAPTOPRIL [Concomitant]
     Indication: CARDIOMYOPATHY
     Route: 048
     Dates: start: 201307
  10. ABIDEC [Concomitant]
     Indication: PRODUCT USED FOR UNKNOWN INDICATION
     Route: 048
  11. ASPIRIN [Concomitant]
     Indication: CARDIOMYOPATHY
     Route: 048
     Dates: start: 201307
  12. TRIMETHOPRIM [Concomitant]
     Indication: PROPHYLAXIS
     Route: 048

REACTIONS (5)
  - Irritability [Recovered/Resolved]
  - Crying [Unknown]
  - Pyrexia [Recovered/Resolved]
  - Injection site erythema [Recovered/Resolved]
  - Injection site papule [Recovered/Resolved]
